FAERS Safety Report 17110786 (Version 1)
Quarter: 2019Q4

REPORT INFORMATION
  Report Type: Spontaneous
  Country: RU (occurrence: RU)
  Receive Date: 20191204
  Receipt Date: 20191204
  Transmission Date: 20200122
  Serious: Yes (Hospitalization)
  Sender: FDA-Public Use
  Company Number: RU-ASTRAZENECA-2019SF71413

PATIENT
  Sex: Male

DRUGS (1)
  1. PULMICORT TURBUHALER [Suspect]
     Active Substance: BUDESONIDE
     Indication: CATARRH
     Dosage: 500 MCG, ONCE
     Route: 055

REACTIONS (4)
  - Product use in unapproved indication [Unknown]
  - Therapeutic product effect decreased [Unknown]
  - Off label use [Unknown]
  - Stenosis [Unknown]
